FAERS Safety Report 4652686-4 (Version None)
Quarter: 2005Q2

REPORT INFORMATION
  Report Type: 
  Country: None (occurrence: None)
  Receive Date: 20050502
  Receipt Date: 20050418
  Transmission Date: 20051028
  Serious: Yes (Other)
  Sender: FDA-Public Use
  Company Number: 2005063600

PATIENT
  Age: 14 Year
  Sex: Male

DRUGS (3)
  1. SOLU-CORTEF [Suspect]
     Indication: ASTHMA
     Dosage: INTRAMUSCULAR
     Route: 030
  2. SALBUTAMOL (SALBUTAMOL) [Concomitant]
  3. FLUTICASONE PROPIONATE [Concomitant]

REACTIONS (2)
  - HYPERSENSITIVITY [None]
  - LOSS OF CONSCIOUSNESS [None]
